FAERS Safety Report 5316086-6 (Version None)
Quarter: 2007Q2

REPORT INFORMATION
  Report Type: 
  Country: None (occurrence: None)
  Receive Date: 20070503
  Receipt Date: 20070423
  Transmission Date: 20071010
  Serious: Yes (Life-Threatening, Other)
  Sender: FDA-Public Use
  Company Number: FR-PFIZER INC-2007014122

PATIENT
  Sex: Female
  Weight: 61 kg

DRUGS (3)
  1. LYRICA [Suspect]
  2. MORPHINE SULFATE [Concomitant]
  3. DURAGESIC-100 [Concomitant]
     Indication: PAIN
     Route: 062

REACTIONS (6)
  - ANXIETY [None]
  - DRUG WITHDRAWAL SYNDROME [None]
  - HEADACHE [None]
  - INFLUENZA [None]
  - MYALGIA [None]
  - SOMNOLENCE [None]
